FAERS Safety Report 10837914 (Version 1)
Quarter: 2015Q1

REPORT INFORMATION
  Report Type: Report from Study
  Country: CA (occurrence: None)
  Receive Date: 20150218
  Receipt Date: 20150218
  Transmission Date: 20150721
  Serious: Yes (Other)
  Sender: FDA-Public Use
  Company Number: 2015CA001182

PATIENT
  Age: 80 Year
  Sex: Male

DRUGS (1)
  1. ELIGARD [Suspect]
     Active Substance: LEUPROLIDE ACETATE
     Indication: PROSTATE CANCER
     Dosage: 45 MG, EVERY 6 MONTHS, SUBCUTANEOUS
     Route: 058
     Dates: end: 20150203

REACTIONS (5)
  - Rash generalised [None]
  - Injection site pain [None]
  - Rash pruritic [None]
  - Eye swelling [None]
  - Injection site mass [None]

NARRATIVE: CASE EVENT DATE: 20150206
